FAERS Safety Report 4899526-6 (Version None)
Quarter: 2006Q1

REPORT INFORMATION
  Report Type: 
  Country: None (occurrence: None)
  Receive Date: 20060118
  Receipt Date: 20050510
  Transmission Date: 20060701
  Serious: No
  Sender: FDA-Public Use
  Company Number: 2005000900

PATIENT
  Age: 80 Year
  Sex: Female

DRUGS (1)
  1. TARCEVA [Suspect]
     Indication: NON-SMALL CELL LUNG CANCER
     Dosage: 150 MG (QD), ORAL
     Route: 048
     Dates: start: 20040415, end: 20050427

REACTIONS (4)
  - BLEPHARITIS [None]
  - RASH [None]
  - STOMATITIS [None]
  - VAGINAL INFECTION [None]
